FAERS Safety Report 7594682-3 (Version None)
Quarter: 2011Q3

REPORT INFORMATION
  Report Type: 
  Country: None (occurrence: None)
  Receive Date: 20110707
  Receipt Date: 20110623
  Transmission Date: 20111222
  Serious: Yes (Hospitalization)
  Sender: FDA-Public Use
  Company Number: KR-JNJFOC-20090901305

PATIENT
  Age: 71 Year
  Sex: Female
  Weight: 50 kg

DRUGS (16)
  1. REMICADE [Suspect]
     Indication: RHEUMATOID ARTHRITIS
     Dosage: 3RD INFUSION
     Route: 042
     Dates: start: 20090508
  2. ANTITUBERCULOSIS DRUG NOS [Suspect]
     Indication: TUBERCULOSIS
  3. SOLONDO [Concomitant]
     Indication: RHEUMATOID ARTHRITIS
     Route: 048
     Dates: start: 20090902, end: 20090907
  4. LEGALON [Concomitant]
     Indication: ENZYME ABNORMALITY
     Route: 048
     Dates: start: 20090508, end: 20091103
  5. REMICADE [Suspect]
     Dosage: 4TH INFUSION
     Route: 042
     Dates: start: 20090721
  6. REMICADE [Suspect]
     Dosage: 1ST INFUSION
     Route: 042
     Dates: start: 20090225
  7. SOLONDO [Concomitant]
     Route: 048
     Dates: start: 20090908
  8. METHOTREXATE [Concomitant]
     Indication: RHEUMATOID ARTHRITIS
     Route: 048
     Dates: start: 20090416, end: 20090901
  9. FOLIC ACID [Concomitant]
     Indication: DRUG TOXICITY PROPHYLAXIS
     Route: 048
     Dates: start: 20060101, end: 20090901
  10. ATACAND [Concomitant]
     Indication: HYPERTENSION
     Route: 048
     Dates: start: 20090114, end: 20090922
  11. REBAMIPIDE [Concomitant]
     Indication: PROPHYLAXIS AGAINST GASTROINTESTINAL ULCER
     Route: 048
     Dates: start: 20070507
  12. URSODIOL [Concomitant]
     Indication: HEPATIC ENZYME INCREASED
     Route: 048
     Dates: start: 20090721, end: 20090901
  13. REMICADE [Suspect]
     Dosage: 2ND INFUSION
     Route: 042
     Dates: start: 20090313
  14. SOLONDO [Concomitant]
     Route: 048
     Dates: start: 20090114, end: 20090901
  15. AMLODIPINE [Concomitant]
     Indication: HYPERTENSION
     Route: 048
     Dates: start: 20090114
  16. HUMALOG [Concomitant]
     Indication: DIABETES MELLITUS
     Route: 058
     Dates: start: 20080922

REACTIONS (2)
  - HEPATOTOXICITY [None]
  - PULMONARY TUBERCULOSIS [None]
